FAERS Safety Report 15859104 (Version 1)
Quarter: 2019Q1

REPORT INFORMATION
  Report Type: Spontaneous
  Country: ES (occurrence: ES)
  Receive Date: 20190123
  Receipt Date: 20190123
  Transmission Date: 20190417
  Serious: Yes (Hospitalization)
  Sender: FDA-Public Use
  Company Number: ES-TEVA-2019-ES-1002340

PATIENT
  Age: 85 Year
  Sex: Male

DRUGS (6)
  1. DUODART [Concomitant]
     Active Substance: DUTASTERIDE\TAMSULOSIN
     Dates: start: 2010
  2. AMOXICILINA/ACIDO CLAVULANICO 875 MG SOBRES [Suspect]
     Active Substance: AMOXICILLIN\CLAVULANIC ACID
     Indication: RESPIRATORY TRACT INFECTION
     Dosage: 1 ON C / 8H
     Route: 048
     Dates: start: 20180213, end: 20180216
  3. ENALAPRILO 20 MG [Concomitant]
     Dosage: 20 MG C/24H
     Route: 048
     Dates: start: 2016
  4. EFFICIB 50/1000 MG COMP [Concomitant]
     Dosage: 1 COM C/12 H
     Route: 048
     Dates: start: 2014
  5. AMLODIPINO 5 MG [Concomitant]
     Dosage: 5 MG C/24H
     Route: 048
     Dates: start: 2009
  6. INSULINA LANTUS [Concomitant]
     Dosage: SP
     Route: 058
     Dates: start: 2009

REACTIONS (1)
  - Hepatitis acute [Recovered/Resolved]

NARRATIVE: CASE EVENT DATE: 20180216
